FAERS Safety Report 14713817 (Version 1)
Quarter: 2018Q2

REPORT INFORMATION
  Report Type: Spontaneous
  Country: US (occurrence: US)
  Receive Date: 20180404
  Receipt Date: 20180404
  Transmission Date: 20180711
  Serious: Yes (Death, Other)
  Sender: FDA-Public Use
  Company Number: US-MYLANLABS-2018M1020318

PATIENT
  Sex: Male

DRUGS (1)
  1. ZOLPIDEM [Suspect]
     Active Substance: ZOLPIDEM\ZOLPIDEM TARTRATE
     Indication: SLEEP DISORDER
     Dosage: UNK

REACTIONS (5)
  - Stevens-Johnson syndrome [Unknown]
  - Oral mucosal blistering [Unknown]
  - Completed suicide [Fatal]
  - Suicidal ideation [Unknown]
  - Rash [Unknown]

NARRATIVE: CASE EVENT DATE: 20180316
